FAERS Safety Report 4735739-1 (Version None)
Quarter: 2005Q3

REPORT INFORMATION
  Report Type: 
  Country: None (occurrence: None)
  Receive Date: 20050803
  Receipt Date: 20050711
  Transmission Date: 20060218
  Serious: Yes (Hospitalization, Other)
  Sender: FDA-Public Use
  Company Number: USA0507102428

PATIENT
  Age: 74 Year
  Sex: Female
  Weight: 68 kg

DRUGS (2)
  1. HUMULIN 70/30 [Suspect]
     Dosage: 34 U/2 DAY
     Dates: start: 19900101
  2. HIGH BLOOD PRESSURE MEDICATION [Concomitant]

REACTIONS (7)
  - ATRIOVENTRICULAR BLOCK [None]
  - EYE HAEMORRHAGE [None]
  - LYMPHATIC DISORDER [None]
  - MEMORY IMPAIRMENT [None]
  - PHARMACEUTICAL PRODUCT COMPLAINT [None]
  - PNEUMONIA [None]
  - STAPHYLOCOCCAL INFECTION [None]
